FAERS Safety Report 9736412 (Version 1)
Quarter: 2013Q4

REPORT INFORMATION
  Report Type: Spontaneous
  Country: US (occurrence: US)
  Receive Date: 20131206
  Receipt Date: 20131206
  Transmission Date: 20140711
  Serious: Yes (Other)
  Sender: FDA-Public Use
  Company Number: US-BMSGILMSD-2013-0088879

PATIENT
  Age: 33 Year
  Sex: Male

DRUGS (8)
  1. ATRIPLA [Suspect]
     Indication: HIV INFECTION
     Dosage: UNK
  2. ZITHROMAX [Concomitant]
     Indication: HIV INFECTION
  3. DAPSONE [Concomitant]
     Indication: PRODUCT USED FOR UNKNOWN INDICATION
  4. AUGMENTIN                          /00756801/ [Concomitant]
     Indication: PRODUCT USED FOR UNKNOWN INDICATION
  5. DOXYCYCLINE [Concomitant]
     Indication: PRODUCT USED FOR UNKNOWN INDICATION
  6. CEPHALEXIN                         /00145501/ [Concomitant]
     Indication: PROCTITIS
  7. ACYCLOVIR                          /00587301/ [Concomitant]
     Indication: PROCTITIS
  8. OXYCODONE [Concomitant]
     Indication: PRODUCT USED FOR UNKNOWN INDICATION

REACTIONS (1)
  - Drug ineffective [Unknown]
